FAERS Safety Report 5297076-9 (Version None)
Quarter: 2007Q1

REPORT INFORMATION
  Report Type: 
  Country: None (occurrence: None)
  Receive Date: 20070201
  Receipt Date: 20061002
  Transmission Date: 20070707
  Serious: No
  Sender: FDA-Public Use
  Company Number: 2006PV022375

PATIENT
  Age: 62 Year
  Sex: Female
  Weight: 87.9978 kg

DRUGS (2)
  1. BYETTA [Suspect]
     Indication: DIABETES MELLITUS NON-INSULIN-DEPENDENT
     Dosage: 5 MCG; BID; SC
     Route: 058
     Dates: start: 20060823
  2. ACTOPLUS MET [Concomitant]

REACTIONS (3)
  - ABDOMINAL DISTENSION [None]
  - INJECTION SITE BRUISING [None]
  - WEIGHT INCREASED [None]
